FAERS Safety Report 12241974 (Version 1)
Quarter: 2016Q2

REPORT INFORMATION
  Report Type: Spontaneous
  Country: US (occurrence: None)
  Receive Date: 20160405
  Receipt Date: 20160405
  Transmission Date: 20160815
  Serious: Yes (Other)
  Sender: FDA-Public Use
  Company Number: None

PATIENT
  Age: 53 Year
  Sex: Female
  Weight: 75.3 kg

DRUGS (3)
  1. MVI [Concomitant]
     Active Substance: VITAMINS
  2. AMLODIPINE BESYLATE. [Suspect]
     Active Substance: AMLODIPINE BESYLATE
     Indication: HYPERTENSION
     Dosage: 1 PILL, 1X 1 DAY AM
     Route: 048
     Dates: start: 20160205, end: 20160303
  3. SYNTHROID [Concomitant]
     Active Substance: LEVOTHYROXINE SODIUM

REACTIONS (4)
  - Insomnia [None]
  - Product tampering [None]
  - Hyperphagia [None]
  - Headache [None]

NARRATIVE: CASE EVENT DATE: 20160205
